FAERS Safety Report 18875864 (Version 2)
Quarter: 2021Q1

REPORT INFORMATION
  Report Type: Spontaneous
  Country: US (occurrence: US)
  Receive Date: 20210210
  Receipt Date: 20210318
  Transmission Date: 20210420
  Serious: Yes (Hospitalization)
  Sender: FDA-Public Use
  Company Number: US-ELI_LILLY_AND_COMPANY-US202102004178

PATIENT
  Age: 77 Year
  Sex: Female
  Weight: 51.8 kg

DRUGS (1)
  1. BAMLANIVIMAB 700MG [Suspect]
     Active Substance: BAMLANIVIMAB
     Indication: COVID-19
     Dosage: 700 MG, SINGLE
     Route: 042
     Dates: start: 20210118, end: 20210118

REACTIONS (9)
  - Troponin increased [Unknown]
  - Constipation [Unknown]
  - Staphylococcus test positive [Unknown]
  - Platelet count decreased [Unknown]
  - Pyrexia [Unknown]
  - Fibrin D dimer increased [Unknown]
  - COVID-19 [Unknown]
  - Cholelithiasis [Unknown]
  - Haemoglobin decreased [Unknown]

NARRATIVE: CASE EVENT DATE: 20210118
